FAERS Safety Report 12500823 (Version 6)
Quarter: 2016Q3

REPORT INFORMATION
  Report Type: Spontaneous
  Country: BR (occurrence: BR)
  Receive Date: 20160627
  Receipt Date: 20160909
  Transmission Date: 20161109
  Serious: Yes (Other)
  Sender: FDA-Public Use
  Company Number: BR-009507513-1604BRA018606

PATIENT
  Age: 43 Year
  Sex: Female
  Weight: 52 kg

DRUGS (6)
  1. IMPLANON [Suspect]
     Active Substance: ETONOGESTREL
     Indication: PREMENSTRUAL SYNDROME
     Dosage: ON THE LEFT ARM
     Route: 058
     Dates: start: 20160208
  2. IMPLANON [Suspect]
     Active Substance: ETONOGESTREL
     Indication: CONTRACEPTION
     Dosage: UNK
     Route: 059
     Dates: start: 2013, end: 20160208
  3. IMPLANON [Suspect]
     Active Substance: ETONOGESTREL
     Dosage: UNK
     Route: 059
     Dates: start: 2010, end: 20160208
  4. IMPLANON [Suspect]
     Active Substance: ETONOGESTREL
     Dosage: UNK, IN LEFT ARM
     Route: 059
     Dates: start: 2007, end: 2010
  5. GESTINOL [Suspect]
     Active Substance: ETHINYL ESTRADIOL\GESTODENE
     Dosage: UNK
     Route: 048
     Dates: start: 20160525, end: 2016
  6. GESTINOL [Suspect]
     Active Substance: ETHINYL ESTRADIOL\GESTODENE
     Dosage: UNK
     Route: 048
     Dates: start: 201607

REACTIONS (19)
  - Haemorrhage [Not Recovered/Not Resolved]
  - Vitamin D decreased [Unknown]
  - Menstruation normal [Recovered/Resolved]
  - Drug dose omission [Unknown]
  - Malaise [Unknown]
  - Amenorrhoea [Recovered/Resolved]
  - Migraine [Recovering/Resolving]
  - Overdose [Unknown]
  - Stress [Unknown]
  - Breast enlargement [Unknown]
  - Complication associated with device [Not Recovered/Not Resolved]
  - Incorrect drug administration duration [Unknown]
  - Premenstrual syndrome [Not Recovered/Not Resolved]
  - Menorrhagia [Recovered/Resolved]
  - Nausea [Unknown]
  - Product use issue [Unknown]
  - Irritability [Not Recovered/Not Resolved]
  - Therapeutic response unexpected [Recovered/Resolved]
  - Menstruation normal [Recovered/Resolved]

NARRATIVE: CASE EVENT DATE: 2007
